FAERS Safety Report 11789874 (Version 2)
Quarter: 2015Q4

REPORT INFORMATION
  Report Type: Spontaneous
  Country: GB (occurrence: GB)
  Receive Date: 20151201
  Receipt Date: 20151210
  Transmission Date: 20160305
  Serious: Yes (Life-Threatening, Hospitalization, Other)
  Sender: FDA-Public Use
  Company Number: GB-PFIZER INC-2015411470

PATIENT
  Age: 52 Year
  Sex: Male

DRUGS (21)
  1. IBUPROFEN. [Suspect]
     Active Substance: IBUPROFEN
     Dosage: 200 MG, UNK
     Route: 065
  2. FLUOXETINE [Suspect]
     Active Substance: FLUOXETINE HYDROCHLORIDE
     Indication: DEPRESSION
     Dosage: 20 MG, UNK
     Route: 048
     Dates: start: 20120813
  3. ATORVASTATIN [Concomitant]
     Active Substance: ATORVASTATIN
     Dosage: 80 MG, UNK
     Dates: start: 20131008, end: 20131219
  4. CO-AMOXICLAV /00756801/ [Concomitant]
     Active Substance: AMOXICILLIN\CLAVULANIC ACID
     Dosage: 625 MG, 3X/DAY
     Route: 048
     Dates: start: 20140418, end: 20140423
  5. GLYCERYL TRINITRATE [Concomitant]
     Active Substance: NITROGLYCERIN
     Dosage: UNK
     Dates: start: 20131008
  6. TRAMADOL. [Concomitant]
     Active Substance: TRAMADOL
     Dosage: 50-100 MG ORAL Q4H PRN
     Route: 048
     Dates: start: 20140416
  7. AMLODIPINE BESILATE [Suspect]
     Active Substance: AMLODIPINE BESYLATE
     Dosage: 10 MG, UNK
     Route: 065
     Dates: start: 20101001
  8. ASPRIN [Suspect]
     Active Substance: ASPIRIN
     Dosage: 3600 MG, SINGLE (75 MG X 48 DF)
     Route: 065
     Dates: start: 20141201, end: 20141201
  9. CO-AMOXICLAV /00756801/ [Concomitant]
     Active Substance: AMOXICILLIN\CLAVULANIC ACID
     Dosage: 1200 MG, 3X/DAY
     Route: 042
     Dates: start: 20140416, end: 20140417
  10. RAMIPRIL. [Suspect]
     Active Substance: RAMIPRIL
     Dosage: 2.5 MG, UNK
     Route: 065
     Dates: start: 20131010
  11. RAMIPRIL. [Suspect]
     Active Substance: RAMIPRIL
     Dosage: 140 MG, SINGLE (2.5 MG X 56 DF)
     Route: 065
     Dates: start: 20141201, end: 20141201
  12. ATORVASTATIN [Concomitant]
     Active Substance: ATORVASTATIN
     Dosage: 20 MG, UNK
     Dates: start: 20140110, end: 20140330
  13. BISOPROLOL [Suspect]
     Active Substance: BISOPROLOL
     Dosage: 40 MG, SINGLE (2.5 MG X 16 DF)
     Route: 065
     Dates: start: 20141201, end: 20141201
  14. AMLODIPINE BESILATE [Suspect]
     Active Substance: AMLODIPINE BESYLATE
     Dosage: 200 MG, SINGLE (10 MG X 20 DF)
     Route: 065
     Dates: start: 20141201, end: 20141201
  15. BISOPROLOL [Suspect]
     Active Substance: BISOPROLOL
     Dosage: 2.5 MG, UNK
     Route: 065
     Dates: start: 20131008
  16. FLUOXETINE [Suspect]
     Active Substance: FLUOXETINE HYDROCHLORIDE
     Dosage: 400 MG, SINGLE (20 MG X 20 DF)
     Route: 048
     Dates: start: 20141201, end: 20141201
  17. CODEINE PHOSPHATE [Concomitant]
     Active Substance: CODEINE PHOSPHATE
     Dosage: 30 MG, 4X/DAY WHEN REQUIRED
     Route: 048
     Dates: start: 20140416
  18. IBUPROFEN. [Suspect]
     Active Substance: IBUPROFEN
     Dosage: 3200 MG, SINGLE (200 MG X 16 DF)
     Route: 065
     Dates: start: 20141201, end: 20141201
  19. ASPRIN [Suspect]
     Active Substance: ASPIRIN
     Dosage: 75 MG, UNK
     Route: 065
     Dates: start: 20131008
  20. FLUOXETINE [Suspect]
     Active Substance: FLUOXETINE HYDROCHLORIDE
     Dosage: 20 MG, UNK
     Route: 048
     Dates: end: 20141217
  21. CLOPIDOGREL [Concomitant]
     Active Substance: CLOPIDOGREL BISULFATE
     Dosage: UNK
     Dates: start: 20131008

REACTIONS (4)
  - Intentional overdose [Recovered/Resolved]
  - Suicide attempt [Recovered/Resolved]
  - Bradycardia [Recovered/Resolved]
  - Hypotension [Recovered/Resolved]

NARRATIVE: CASE EVENT DATE: 20141201
